FAERS Safety Report 6676615-7 (Version None)
Quarter: 2010Q2

REPORT INFORMATION
  Report Type: 
  Country: None (occurrence: None)
  Receive Date: 20100412
  Receipt Date: 20100330
  Transmission Date: 20101027
  Serious: Yes (Hospitalization, Other)
  Sender: FDA-Public Use
  Company Number: PHHY2010GB21650

PATIENT
  Sex: Female

DRUGS (2)
  1. CLOZARIL [Suspect]
     Indication: SCHIZOPHRENIA
     Dosage: 300 MG PER DAY
     Dates: start: 20050831
  2. CLOZARIL [Suspect]
     Dosage: 200 MG PER DAY

REACTIONS (8)
  - BLOOD COUNT ABNORMAL [None]
  - CONVULSION [None]
  - DRUG INEFFECTIVE [None]
  - LOWER RESPIRATORY TRACT INFECTION [None]
  - MALAISE [None]
  - PETIT MAL EPILEPSY [None]
  - PYREXIA [None]
  - SYNCOPE [None]
